FAERS Safety Report 13297279 (Version 1)
Quarter: 2017Q1

REPORT INFORMATION
  Report Type: Spontaneous
  Country: US (occurrence: US)
  Receive Date: 20170303
  Receipt Date: 20170303
  Transmission Date: 20170428
  Serious: Yes (Hospitalization)
  Sender: FDA-Public Use
  Company Number: None

PATIENT
  Age: 65 Year
  Sex: Female

DRUGS (13)
  1. ASPIRIN. [Concomitant]
     Active Substance: ASPIRIN
  2. OMEPRTHALID [Concomitant]
  3. OMEGA 3 [Concomitant]
     Active Substance: OMEGA-3 FATTY ACIDS
  4. FIBER CAPS [Concomitant]
     Active Substance: CALCIUM POLYCARBOPHIL
  5. FASLODEX [Concomitant]
     Active Substance: FULVESTRANT
  6. GLIPIZIDE. [Concomitant]
     Active Substance: GLIPIZIDE
  7. CHLORTHALID [Concomitant]
  8. QUINAP [Concomitant]
  9. METOPROLOL TARTRATE. [Concomitant]
     Active Substance: METOPROLOL TARTRATE
  10. CITALOPRAM [Concomitant]
     Active Substance: CITALOPRAM HYDROBROMIDE
  11. IBRANCE [Suspect]
     Active Substance: PALBOCICLIB
     Indication: BREAST CANCER
     Dosage: 125MG QD OR
     Route: 048
     Dates: start: 20160921
  12. VITAMIN D3 [Concomitant]
     Active Substance: CHOLECALCIFEROL
  13. MOVOLIN [Concomitant]

REACTIONS (3)
  - Pleural effusion [None]
  - Drug dose omission [None]
  - Chest discomfort [None]

NARRATIVE: CASE EVENT DATE: 20170226
